FAERS Safety Report 11670063 (Version 3)
Quarter: 2016Q1

REPORT INFORMATION
  Report Type: Spontaneous
  Country: US (occurrence: US)
  Receive Date: 20151027
  Receipt Date: 20160107
  Transmission Date: 20160525
  Serious: Yes (Death, Hospitalization, Other)
  Sender: FDA-Public Use
  Company Number: US-GLAXOSMITHKLINE-US2015150854

PATIENT
  Age: 70 Year
  Sex: Female

DRUGS (1)
  1. AVANDIA [Suspect]
     Active Substance: ROSIGLITAZONE MALEATE
     Indication: DIABETES MELLITUS
     Dosage: 4 MG, Z
     Route: 048
     Dates: end: 20150603

REACTIONS (4)
  - Decreased appetite [Unknown]
  - Death [Fatal]
  - Dehydration [Unknown]
  - Dysstasia [Unknown]

NARRATIVE: CASE EVENT DATE: 201508
